FAERS Safety Report 5421386-5 (Version None)
Quarter: 2007Q3

REPORT INFORMATION
  Report Type: 
  Country: None (occurrence: None)
  Receive Date: 20070821
  Receipt Date: 20070813
  Transmission Date: 20080115
  Serious: Yes (Other)
  Sender: FDA-Public Use
  Company Number: US-BRISTOL-MYERS SQUIBB COMPANY-13880299

PATIENT

DRUGS (3)
  1. CYCLOPHOSPHAMIDE [Suspect]
     Indication: LUPUS NEPHRITIS
     Route: 048
  2. FLUDARABINE PHOSPHATE [Suspect]
     Indication: LUPUS NEPHRITIS
     Route: 058
  3. PREDNISONE TAB [Concomitant]
     Route: 048

REACTIONS (1)
  - PANCREATIC CYST [None]
